FAERS Safety Report 7742816-X (Version None)
Quarter: 2011Q3

REPORT INFORMATION
  Report Type: 
  Country: None (occurrence: None)
  Receive Date: 20110912
  Receipt Date: 20110906
  Transmission Date: 20111222
  Serious: Yes (Other)
  Sender: FDA-Public Use
  Company Number: US-JNJFOC-20110809637

PATIENT
  Age: 33 Year
  Sex: Female
  Weight: 79.83 kg

DRUGS (3)
  1. TOPAMAX [Suspect]
     Dosage: ONE TABLET ONCE A DAY THEN TWICE A DAY
     Route: 048
  2. IMITREX [Concomitant]
     Indication: MIGRAINE
     Dosage: AS NEEDED
     Route: 048
     Dates: start: 20110628
  3. TOPAMAX [Suspect]
     Indication: MIGRAINE PROPHYLAXIS
     Dosage: ONE TABLET ONCE A DAY THEN TWICE A DAY
     Route: 048

REACTIONS (2)
  - PARAESTHESIA [None]
  - NEUROPATHY PERIPHERAL [None]
